FAERS Safety Report 5615157-4 (Version None)
Quarter: 2008Q1

REPORT INFORMATION
  Report Type: 
  Country: None (occurrence: None)
  Receive Date: 20080206
  Receipt Date: 20071205
  Transmission Date: 20080703
  Serious: No
  Sender: FDA-Public Use
  Company Number: A0680906A

PATIENT
  Age: 43 Year
  Sex: Female

DRUGS (8)
  1. ARIXTRA [Suspect]
     Dosage: 5MG PER DAY
     Route: 058
     Dates: start: 20070801
  2. ZOFRAN [Concomitant]
  3. PHENERGAN HCL [Concomitant]
  4. CARAFATE [Concomitant]
  5. UNKNOWN MEDICATION [Concomitant]
     Route: 048
  6. DARVON [Concomitant]
  7. NEXIUM [Concomitant]
  8. UNKNOWN MEDICATION [Concomitant]
     Indication: WHITE BLOOD CELL COUNT

REACTIONS (2)
  - INJECTION SITE PAIN [None]
  - PHARMACEUTICAL PRODUCT COMPLAINT [None]
